FAERS Safety Report 6984096-9 (Version None)
Quarter: 2010Q3

REPORT INFORMATION
  Report Type: 
  Country: None (occurrence: None)
  Receive Date: 20100915
  Receipt Date: 20090521
  Transmission Date: 20110219
  Serious: No
  Sender: FDA-Public Use
  Company Number: US-WYE-H09463909

PATIENT
  Sex: Female
  Weight: 122.58 kg

DRUGS (3)
  1. PRISTIQ [Suspect]
     Indication: DEPRESSION
     Route: 048
     Dates: start: 20090319
  2. DIOVAN [Concomitant]
  3. ADVAIR DISKUS 100/50 [Concomitant]

REACTIONS (2)
  - MYDRIASIS [None]
  - VISION BLURRED [None]
